FAERS Safety Report 24169043 (Version 5)
Quarter: 2025Q1

REPORT INFORMATION
  Report Type: Spontaneous
  Country: US (occurrence: US)
  Receive Date: 20240802
  Receipt Date: 20250103
  Transmission Date: 20250408
  Serious: No
  Sender: PFIZER
  Company Number: US-PFIZER INC-PV202300118552

PATIENT
  Age: 77 Year
  Sex: Female

DRUGS (2)
  1. DAURISMO [Suspect]
     Active Substance: GLASDEGIB
     Indication: Acute myeloid leukaemia
     Dosage: 100 MG, 1X/DAY (1 TAB DAILY)
     Dates: start: 20230629
  2. DAURISMO [Suspect]
     Active Substance: GLASDEGIB
     Indication: Chemotherapy

REACTIONS (4)
  - Swelling [Unknown]
  - Malaise [Unknown]
  - Illness [Unknown]
  - Food intolerance [Unknown]

NARRATIVE: CASE EVENT DATE: 20240101
